FAERS Safety Report 12749712 (Version 2)
Quarter: 2017Q3

REPORT INFORMATION
  Report Type: Spontaneous
  Country: US (occurrence: US)
  Receive Date: 20160915
  Receipt Date: 20170914
  Transmission Date: 20171127
  Serious: No
  Sender: FDA-Public Use
  Company Number: US-ASTELLAS-2016US017145

PATIENT
  Sex: Male

DRUGS (5)
  1. XTANDI [Suspect]
     Active Substance: ENZALUTAMIDE
     Indication: PROSTATE CANCER
     Route: 048
     Dates: start: 20160310
  2. XTANDI [Suspect]
     Active Substance: ENZALUTAMIDE
     Route: 048
  3. FIRMAGON [Concomitant]
     Active Substance: DEGARELIX ACETATE
     Indication: PRODUCT USED FOR UNKNOWN INDICATION
     Dosage: UNK UNK, UNKNOWN FREQ.
     Route: 065
  4. XTANDI [Suspect]
     Active Substance: ENZALUTAMIDE
     Route: 048
     Dates: start: 20160925
  5. VIVELLE-DOT [Concomitant]
     Active Substance: ESTRADIOL
     Indication: PRODUCT USED FOR UNKNOWN INDICATION
     Dosage: UNK UNK, UNKNOWN FREQ.
     Route: 065

REACTIONS (15)
  - Disturbance in attention [Unknown]
  - Asthenia [Unknown]
  - Confusional state [Unknown]
  - Feeling abnormal [Unknown]
  - Irritability [Unknown]
  - Aphasia [Unknown]
  - Weight decreased [Unknown]
  - Diabetes mellitus [Unknown]
  - Muscle atrophy [Unknown]
  - Anaemia [Unknown]
  - Amnesia [Not Recovered/Not Resolved]
  - Dizziness [Unknown]
  - Glucose tolerance impaired [Unknown]
  - Balance disorder [Unknown]
  - Judgement impaired [Unknown]
